FAERS Safety Report 6011835-6 (Version None)
Quarter: 2008Q4

REPORT INFORMATION
  Report Type: 
  Country: None (occurrence: None)
  Receive Date: 20081218
  Receipt Date: 20081107
  Transmission Date: 20090506
  Serious: No
  Sender: FDA-Public Use
  Company Number: US-ABBOTT-08P-163-0487078-00

PATIENT
  Sex: Female

DRUGS (2)
  1. MERIDIA [Suspect]
     Indication: DRUG USE FOR UNKNOWN INDICATION
     Route: 048
     Dates: start: 20081001
  2. IMIPRAMINE [Concomitant]
     Indication: CYSTITIS INTERSTITIAL

REACTIONS (1)
  - CYSTITIS [None]
